FAERS Safety Report 9184249 (Version 1)
Quarter: 2013Q1

REPORT INFORMATION
  Report Type: Spontaneous
  Country: US (occurrence: US)
  Receive Date: 20130322
  Receipt Date: 20130322
  Transmission Date: 20140127
  Serious: No
  Sender: FDA-Public Use
  Company Number: US-BRISTOL-MYERS SQUIBB COMPANY-16473761

PATIENT
  Age: 45 Year
  Sex: Female
  Weight: 98 kg

DRUGS (4)
  1. ERBITUX [Suspect]
     Indication: COLORECTAL CANCER
     Dates: start: 20120301
  2. FLUOROURACIL [Concomitant]
     Indication: COLORECTAL CANCER
  3. IRINOTECAN [Concomitant]
     Indication: COLORECTAL CANCER
  4. FOLINIC ACID [Concomitant]
     Indication: COLORECTAL CANCER

REACTIONS (3)
  - Skin disorder [Not Recovered/Not Resolved]
  - Dry skin [Not Recovered/Not Resolved]
  - Burning sensation [Not Recovered/Not Resolved]
